FAERS Safety Report 13870450 (Version 3)
Quarter: 2019Q2

REPORT INFORMATION
  Report Type: Report from Study
  Country: JP (occurrence: JP)
  Receive Date: 20170815
  Receipt Date: 20190618
  Transmission Date: 20190711
  Serious: Yes (Death, Other)
  Sender: FDA-Public Use
  Company Number: JP-ARIAD PHARMACEUTICALS, INC-2017JP008728

PATIENT
  Sex: Male
  Weight: 56 kg

DRUGS (3)
  1. CYLOCIDE [Concomitant]
     Active Substance: CYTARABINE
     Dosage: UNK
     Route: 065
     Dates: start: 20161213, end: 20161219
  2. PONATINIB [Suspect]
     Active Substance: PONATINIB
     Indication: CHRONIC MYELOID LEUKAEMIA TRANSFORMATION
     Dosage: 45 MILLIGRAM, QD
     Route: 048
     Dates: start: 20161209, end: 20161227
  3. CYLOCIDE [Concomitant]
     Active Substance: CYTARABINE
     Indication: CHRONIC MYELOID LEUKAEMIA
     Dosage: 1400 MILLIGRAM/SQ. METER
     Route: 065
     Dates: start: 20161117, end: 20161121

REACTIONS (2)
  - Therapeutic product effect incomplete [Unknown]
  - Chronic myeloid leukaemia transformation [Fatal]
